FAERS Safety Report 4945032-X (Version None)
Quarter: 2006Q1

REPORT INFORMATION
  Report Type: 
  Country: None (occurrence: None)
  Receive Date: 20060117
  Receipt Date: 20050721
  Transmission Date: 20060701
  Serious: Yes (Hospitalization)
  Sender: FDA-Public Use
  Company Number: A03200502221

PATIENT
  Age: 67 Year
  Sex: Female
  Weight: 104.31 kg

DRUGS (15)
  1. PLAVIX [Suspect]
     Indication: CATHETERISATION CARDIAC
     Dosage: 75 MG QD - ORAL
     Route: 048
     Dates: start: 20030101, end: 20040101
  2. PLAVIX [Suspect]
     Indication: CORONARY ARTERIAL STENT INSERTION
     Dosage: 75 MG QD - ORAL
     Route: 048
     Dates: start: 20030101, end: 20040101
  3. PLAVIX [Suspect]
     Indication: CATHETERISATION CARDIAC
     Dosage: 37.5 MG QD - ORAL
     Route: 048
     Dates: start: 20040101
  4. PLAVIX [Suspect]
     Indication: CORONARY ARTERIAL STENT INSERTION
     Dosage: 37.5 MG QD - ORAL
     Route: 048
     Dates: start: 20040101
  5. INSULIN [Concomitant]
  6. FUROSEMIDE [Concomitant]
  7. ISOSORBIDE MONONITRATE [Concomitant]
  8. ACETYLSALICYLIC ACID SRT [Concomitant]
  9. LANSOPRAZOLE [Concomitant]
  10. CARVEDILOL [Concomitant]
  11. ESTROGENS CONJUGATED [Concomitant]
  12. ATORVASTATIN CALCIUM [Concomitant]
  13. METOLAZONE [Concomitant]
  14. HYDRALAZINE [Concomitant]
  15. VITAMINS [Concomitant]

REACTIONS (2)
  - CONTUSION [None]
  - CORONARY ARTERY OCCLUSION [None]
